FAERS Safety Report 14573079 (Version 4)
Quarter: 2018Q4

REPORT INFORMATION
  Report Type: Spontaneous
  Country: JP (occurrence: JP)
  Receive Date: 20180226
  Receipt Date: 20181220
  Transmission Date: 20190204
  Serious: Yes (Death, Life-Threatening, Hospitalization, Other)
  Sender: FDA-Public Use
  Company Number: JP-SA-2018SA048749

PATIENT
  Age: 70 Year
  Sex: Male
  Weight: 55 kg

DRUGS (27)
  1. ELPLAT [Suspect]
     Active Substance: OXALIPLATIN
     Dosage: 124 MG, INJECTION
     Route: 041
     Dates: start: 20160114, end: 20160114
  2. ELPLAT [Suspect]
     Active Substance: OXALIPLATIN
     Dosage: INJECTION
     Route: 041
     Dates: start: 20160510, end: 20160510
  3. ELPLAT [Suspect]
     Active Substance: OXALIPLATIN
     Dosage: INJECTION
     Route: 041
     Dates: start: 20160607, end: 20160607
  4. TS-1 [Concomitant]
     Active Substance: GIMERACIL\OTERACIL\TEGAFUR
     Dosage: 100 UNK
     Dates: start: 20151119, end: 20151119
  5. TS-1 [Concomitant]
     Active Substance: GIMERACIL\OTERACIL\TEGAFUR
     Dosage: UNK
     Dates: start: 20160114, end: 20160114
  6. ELPLAT [Suspect]
     Active Substance: OXALIPLATIN
     Indication: GASTRIC CANCER
     Dosage: INJECTION
     Route: 041
     Dates: start: 20151023, end: 20151023
  7. ELPLAT [Suspect]
     Active Substance: OXALIPLATIN
     Dosage: INJECTION
     Route: 041
     Dates: start: 20160324, end: 20160324
  8. TS-1 [Concomitant]
     Active Substance: GIMERACIL\OTERACIL\TEGAFUR
     Dosage: 100 UNK
     Dates: start: 20151106, end: 20151106
  9. TS-1 [Concomitant]
     Active Substance: GIMERACIL\OTERACIL\TEGAFUR
     Dosage: UNK
     Dates: start: 20160324, end: 20160324
  10. ELPLAT [Suspect]
     Active Substance: OXALIPLATIN
     Dosage: 159.8 MG, INJECTION
     Route: 041
     Dates: start: 20151119, end: 20151119
  11. TS-1 [Concomitant]
     Active Substance: GIMERACIL\OTERACIL\TEGAFUR
     Dosage: 100 MG, QD
     Route: 065
     Dates: start: 20151023, end: 20151023
  12. TS-1 [Concomitant]
     Active Substance: GIMERACIL\OTERACIL\TEGAFUR
     Dosage: UNK
     Dates: start: 20160726, end: 20160726
  13. ELPLAT [Suspect]
     Active Substance: OXALIPLATIN
     Dosage: INJECTION
     Route: 041
     Dates: start: 20160303, end: 20160303
  14. ELPLAT [Suspect]
     Active Substance: OXALIPLATIN
     Dosage: INJECTION
     Route: 041
     Dates: start: 20160726, end: 20160726
  15. TS-1 [Concomitant]
     Active Substance: GIMERACIL\OTERACIL\TEGAFUR
     Dosage: UNK
     Dates: start: 20151202, end: 20151202
  16. TS-1 [Concomitant]
     Active Substance: GIMERACIL\OTERACIL\TEGAFUR
     Dosage: UNK
     Dates: start: 20160303, end: 20160303
  17. TS-1 [Concomitant]
     Active Substance: GIMERACIL\OTERACIL\TEGAFUR
     Dosage: UNK, QCY
     Dates: start: 20160510, end: 20160510
  18. ELPLAT [Suspect]
     Active Substance: OXALIPLATIN
     Dosage: 159.8 MG INJECTION
     Route: 041
     Dates: start: 20151217, end: 20151217
  19. ELPLAT [Suspect]
     Active Substance: OXALIPLATIN
     Dosage: INJECTION
     Route: 041
     Dates: start: 20160628, end: 20160628
  20. ELPLAT [Suspect]
     Active Substance: OXALIPLATIN
     Dosage: INJECTION
     Route: 041
     Dates: start: 20160816, end: 20160816
  21. TS-1 [Concomitant]
     Active Substance: GIMERACIL\OTERACIL\TEGAFUR
     Dosage: UNK, QCY
     Dates: start: 20160628, end: 20160628
  22. TS-1 [Concomitant]
     Active Substance: GIMERACIL\OTERACIL\TEGAFUR
     Dosage: UNK
     Dates: start: 20160816, end: 20160816
  23. TS-1 [Concomitant]
     Active Substance: GIMERACIL\OTERACIL\TEGAFUR
     Dosage: UNK
     Dates: start: 20151230, end: 20151230
  24. TS-1 [Concomitant]
     Active Substance: GIMERACIL\OTERACIL\TEGAFUR
     Dosage: UNK
     Dates: start: 20160607, end: 20160607
  25. ALOXI [Concomitant]
     Active Substance: PALONOSETRON HYDROCHLORIDE
     Dosage: UNK
     Dates: start: 20151023, end: 20160816
  26. TS-1 [Concomitant]
     Active Substance: GIMERACIL\OTERACIL\TEGAFUR
     Dosage: 100 UNK
     Dates: start: 20151217, end: 20151217
  27. DEXART [Concomitant]
     Active Substance: DEXAMETHASONE SODIUM PHOSPHATE
     Dosage: UNK
     Dates: start: 20151023, end: 20160816

REACTIONS (4)
  - Haematemesis [Unknown]
  - Oesophageal varices haemorrhage [Recovering/Resolving]
  - Malignant ascites [Unknown]
  - Varices oesophageal [Recovering/Resolving]

NARRATIVE: CASE EVENT DATE: 20160927
